FAERS Safety Report 9044300 (Version 3)
Quarter: 2013Q2

REPORT INFORMATION
  Report Type: Spontaneous
  Country: US (occurrence: US)
  Receive Date: 20130131
  Receipt Date: 20130503
  Transmission Date: 20140414
  Serious: Yes (Hospitalization)
  Sender: FDA-Public Use
  Company Number: US-BIOGENIDEC-2013BI008117

PATIENT
  Age: 75 Year
  Sex: Female

DRUGS (2)
  1. AVONEX [Suspect]
     Indication: MULTIPLE SCLEROSIS
     Route: 030
  2. HYDROCHLOROTHIAZIDE [Concomitant]
     Indication: HYPERTENSION

REACTIONS (19)
  - Overdose [Unknown]
  - Memory impairment [Unknown]
  - Hypotension [Recovered/Resolved]
  - General symptom [Recovered/Resolved]
  - Balance disorder [Recovered/Resolved]
  - Multiple sclerosis [Recovered/Resolved]
  - Muscular weakness [Recovered/Resolved]
  - Embolic stroke [Unknown]
  - Ischaemic stroke [Unknown]
  - Haemorrhage intracranial [Unknown]
  - Encephalitis [Unknown]
  - Meningitis [Unknown]
  - Electrolyte imbalance [Unknown]
  - Adverse drug reaction [Unknown]
  - Hypoglycaemia [Unknown]
  - Dehydration [Unknown]
  - Somnolence [Unknown]
  - Mental status changes [Unknown]
  - Drug abuse [Unknown]
